FAERS Safety Report 6832184-X (Version None)
Quarter: 2010Q3

REPORT INFORMATION
  Report Type: 
  Country: None (occurrence: None)
  Receive Date: 20100712
  Receipt Date: 20100630
  Transmission Date: 20110219
  Serious: Yes (Other)
  Sender: FDA-Public Use
  Company Number: PHHY2010JP43017

PATIENT
  Age: 46 Year
  Sex: Female

DRUGS (4)
  1. SIMULECT [Suspect]
     Indication: RENAL TRANSPLANT
     Dosage: 20 MG
     Route: 042
  2. TACROLIMUS [Concomitant]
     Indication: RENAL TRANSPLANT
     Dosage: 1.8 MG
     Route: 042
  3. METHYLPREDNISOLONE ACETATE [Concomitant]
     Indication: RENAL TRANSPLANT
     Dosage: 250 MG
     Route: 042
  4. CELLCEPT [Concomitant]
     Indication: RENAL TRANSPLANT
     Dosage: 1000 MG
     Route: 048

REACTIONS (8)
  - CYTOMEGALOVIRUS INFECTION [None]
  - DISSEMINATED INTRAVASCULAR COAGULATION [None]
  - ENTEROCOCCUS TEST POSITIVE [None]
  - HAEMOLYTIC ANAEMIA [None]
  - KIDNEY TRANSPLANT REJECTION [None]
  - PSEUDOMONAS TEST POSITIVE [None]
  - STAPHYLOCOCCUS TEST POSITIVE [None]
  - TRANSPLANT REJECTION [None]
